FAERS Safety Report 6841862-8 (Version None)
Quarter: 2010Q3

REPORT INFORMATION
  Report Type: 
  Country: None (occurrence: None)
  Receive Date: 20100714
  Receipt Date: 20070716
  Transmission Date: 20110219
  Serious: No
  Sender: FDA-Public Use
  Company Number: US-PFIZER INC-2007059332

PATIENT
  Sex: Female
  Weight: 77.3 kg

DRUGS (3)
  1. CHANTIX [Suspect]
     Indication: SMOKING CESSATION THERAPY
     Dates: start: 20070615, end: 20070713
  2. ANTIHYPERTENSIVES [Concomitant]
  3. MULTI-VITAMINS [Concomitant]

REACTIONS (6)
  - AGITATION [None]
  - CRYING [None]
  - DEPRESSION [None]
  - DISTURBANCE IN ATTENTION [None]
  - PANIC REACTION [None]
  - SCREAMING [None]
